FAERS Safety Report 5129579-1 (Version None)
Quarter: 2006Q4

REPORT INFORMATION
  Report Type: 
  Country: None (occurrence: None)
  Receive Date: 20061012
  Receipt Date: 20060926
  Transmission Date: 20070319
  Serious: Yes (Hospitalization)
  Sender: FDA-Public Use
  Company Number: DSA_61194_2006

PATIENT
  Age: 16 Year
  Sex: Male

DRUGS (7)
  1. DIASTAT [Suspect]
     Indication: EPILEPSY
     Dosage: 20 MG PRN RC
  2. DIASTAT [Suspect]
     Indication: EPILEPSY
     Dosage: 15 MG UNK RC
  3. LAMICTAL [Concomitant]
  4. KLONOPIN [Concomitant]
  5. DILANTIN [Concomitant]
  6. VAGAL NERVE STIMULATION [Concomitant]
  7. ZARONTIN [Concomitant]

REACTIONS (3)
  - INCORRECT DOSE ADMINISTERED [None]
  - MEDICAL DEVICE COMPLICATION [None]
  - PHARMACEUTICAL PRODUCT COMPLAINT [None]
